FAERS Safety Report 12486966 (Version 1)
Quarter: 2016Q2

REPORT INFORMATION
  Report Type: Spontaneous
  Country: US (occurrence: None)
  Receive Date: 20160621
  Receipt Date: 20160621
  Transmission Date: 20160815
  Serious: Yes (Disabling)
  Sender: FDA-Public Use
  Company Number: None

PATIENT
  Age: 65 Year
  Sex: Female
  Weight: 61.24 kg

DRUGS (4)
  1. IMIQUIMOD 5% CREAM PACKET, .25 G PERRIGO [Suspect]
     Active Substance: IMIQUIMOD
     Indication: ACTINIC KERATOSIS
     Dosage: 24 PACKET AT BEDTIME APPLIED TO A SURFACE, USUALLY THE SKIN
     Route: 061
     Dates: start: 20151130, end: 20151211
  2. MULTIVITAMIN [Concomitant]
     Active Substance: VITAMINS
  3. ASHWAGANDA [Concomitant]
  4. TYROSINE [Concomitant]
     Active Substance: TYROSINE

REACTIONS (5)
  - Oral herpes [None]
  - Herpes zoster [None]
  - Chest pain [None]
  - Thyroiditis [None]
  - Rash [None]
